FAERS Safety Report 9539620 (Version 1)
Quarter: 2013Q2

REPORT INFORMATION
  Report Type: Spontaneous
  Country: US (occurrence: None)
  Receive Date: 20130521
  Receipt Date: 20130521
  Transmission Date: 20140414
  Serious: Yes (Other)
  Sender: FDA-Public Use
  Company Number: 1000041972

PATIENT
  Age: 75 Year
  Sex: Female

DRUGS (4)
  1. TUDORZA PRESSAIR [Suspect]
     Indication: EMPHYSEMA
     Dosage: 400 MCG (400 MCG, 1 IN 1 D), RESPIRATORY (INHALATION)?
     Route: 055
     Dates: start: 201212
  2. OXYGEN (OXYGEN) (OXYGEN) [Concomitant]
  3. SYMBICORT (BUDESONIDE W/FORMOTEROL FUMARATE) (BUDESONIDE W/ FORMOTEROL FUMARATE) [Concomitant]
  4. RELIEF INHALER NOS (RELIEF INHALER NOS) (RELIEF INHALER NOS) [Concomitant]

REACTIONS (2)
  - Ocular hyperaemia [None]
  - Glassy eyes [None]
